FAERS Safety Report 6858066-5 (Version None)
Quarter: 2010Q3

REPORT INFORMATION
  Report Type: 
  Country: None (occurrence: None)
  Receive Date: 20100719
  Receipt Date: 20100707
  Transmission Date: 20110219
  Serious: Yes (Hospitalization)
  Sender: FDA-Public Use
  Company Number: DE-PFIZER INC-2010072486

PATIENT
  Age: 84 Year
  Sex: Male
  Weight: 73.1 kg

DRUGS (10)
  1. BLINDED *NO SUBJECT DRUG [Suspect]
     Indication: CARDIAC FAILURE
     Dosage: UNK
     Dates: start: 20060621
  2. BLINDED *PLACEBO [Suspect]
     Indication: CARDIAC FAILURE
     Dosage: UNK
     Dates: start: 20060621
  3. EPLERENONE [Suspect]
     Indication: CARDIAC FAILURE
     Dosage: UNK
     Dates: start: 20060621
  4. LISINOPRIL [Concomitant]
     Dosage: UNK
     Dates: start: 20050101
  5. HYDROCHLOROTHIAZIDE [Concomitant]
     Dosage: UNK
     Dates: start: 20050101
  6. SIMVASTATIN [Concomitant]
     Dosage: UNK
     Dates: start: 19890101
  7. TORASEMIDE [Concomitant]
     Dosage: UNK
     Dates: start: 20050101
  8. BISOPROLOL [Concomitant]
     Dosage: UNK
     Dates: start: 19890101
  9. ALLOPURINOL [Concomitant]
     Dosage: UNK
     Dates: start: 20090101
  10. CLOPIDOGREL [Concomitant]
     Dosage: UNK
     Dates: start: 20100101

REACTIONS (2)
  - RECTAL CANCER [None]
  - WEIGHT DECREASED [None]
